FAERS Safety Report 19815049 (Version 1)
Quarter: 2021Q3

REPORT INFORMATION
  Report Type: Spontaneous
  Country: US (occurrence: US)
  Receive Date: 20210907
  Receipt Date: 20210907
  Transmission Date: 20211014
  Serious: No
  Sender: FDA-Public Use
  Company Number: None

PATIENT
  Age: 84 Year
  Sex: Male

DRUGS (1)
  1. REMICADE [Suspect]
     Active Substance: INFLIXIMAB
     Indication: COLITIS ULCERATIVE
     Dosage: 5MG PER KG EVERY 8 WEEKS INTRAVENOUS
     Route: 042

REACTIONS (5)
  - Hypotension [None]
  - Tremor [None]
  - Infusion related reaction [None]
  - Chills [None]
  - Nausea [None]

NARRATIVE: CASE EVENT DATE: 20210525
